FAERS Safety Report 10283735 (Version 2)
Quarter: 2014Q3

REPORT INFORMATION
  Report Type: Spontaneous
  Country: DE (occurrence: None)
  Receive Date: 20140702
  Receipt Date: 20140716
  Transmission Date: 20150326
  Serious: Yes (Other)
  Sender: FDA-Public Use
  Company Number: AUR-APL-2014-07026

PATIENT
  Age: 37 Year
  Sex: Female

DRUGS (2)
  1. OLANZAPINE 5MG (OLANZAPINE) UNKNOWN, 5MG [Suspect]
     Active Substance: OLANZAPINE
     Indication: ANXIETY DISORDER
     Route: 048
     Dates: start: 20120803
  2. CEFUROXIM [Concomitant]
     Active Substance: CEFUROXIME

REACTIONS (3)
  - Caesarean section [None]
  - Exposure during pregnancy [None]
  - Obstructed labour [None]

NARRATIVE: CASE EVENT DATE: 20130424
